FAERS Safety Report 7573213-8 (Version None)
Quarter: 2011Q2

REPORT INFORMATION
  Report Type: 
  Country: None (occurrence: None)
  Receive Date: 20110627
  Receipt Date: 20110621
  Transmission Date: 20111010
  Serious: No
  Sender: FDA-Public Use
  Company Number: US-PFIZER INC-2011138733

PATIENT
  Sex: Male

DRUGS (2)
  1. IBUPROFEN [Suspect]
     Dosage: UNK
  2. DICLOFENAC POTASSIUM [Suspect]
     Dosage: UNK

REACTIONS (2)
  - GASTRIC DISORDER [None]
  - ABDOMINAL DISCOMFORT [None]
